FAERS Safety Report 9360591 (Version 1)
Quarter: 2013Q2

REPORT INFORMATION
  Report Type: Spontaneous
  Country: US (occurrence: None)
  Receive Date: 20130620
  Receipt Date: 20130620
  Transmission Date: 20140414
  Serious: No
  Sender: FDA-Public Use
  Company Number: None

PATIENT
  Age: 67 Year
  Sex: Female

DRUGS (4)
  1. GLEEVEC [Suspect]
     Route: 048
  2. OMEPRAZOLE [Concomitant]
  3. VALACYCLOVIR [Concomitant]
  4. DETROL LA [Concomitant]

REACTIONS (1)
  - Eye disorder [None]
